FAERS Safety Report 4567338-9 (Version None)
Quarter: 2005Q1

REPORT INFORMATION
  Report Type: 
  Country: None (occurrence: None)
  Receive Date: 20050127
  Receipt Date: 20050113
  Transmission Date: 20050727
  Serious: Yes (Other)
  Sender: FDA-Public Use
  Company Number: TPA2005A00072

PATIENT
  Sex: 0

DRUGS (1)
  1. PIOGLITAZONE HCL [Suspect]
     Dosage: PER ORAL
     Route: 048

REACTIONS (1)
  - BLOOD CREATINE INCREASED [None]
